FAERS Safety Report 22652311 (Version 5)
Quarter: 2024Q4

REPORT INFORMATION
  Report Type: Spontaneous
  Country: JP (occurrence: JP)
  Receive Date: 20230628
  Receipt Date: 20241120
  Transmission Date: 20250115
  Serious: Yes (Other)
  Sender: NOVARTIS
  Company Number: JP-002147023-NVSJ2023JP007810

PATIENT
  Age: 68 Year
  Sex: Male
  Weight: 60 kg

DRUGS (2)
  1. BEOVU [Suspect]
     Active Substance: BROLUCIZUMAB-DBLL
     Indication: Age-related macular degeneration
     Dosage: 6 MG
     Route: 031
     Dates: start: 20230209, end: 20230209
  2. BEOVU [Suspect]
     Active Substance: BROLUCIZUMAB-DBLL
     Indication: Polypoidal choroidal vasculopathy
     Dosage: 6 MG
     Route: 031
     Dates: start: 20230405, end: 20230405

REACTIONS (13)
  - Vitreous opacities [Recovered/Resolved]
  - Retinal artery occlusion [Recovered/Resolved with Sequelae]
  - Retinal exudates [Unknown]
  - Blindness [Not Recovered/Not Resolved]
  - Vitritis [Recovered/Resolved]
  - Eye pain [Recovered/Resolved]
  - Retinal vein occlusion [Recovered/Resolved with Sequelae]
  - Iritis [Recovered/Resolved]
  - Retinal occlusive vasculitis [Recovered/Resolved]
  - Visual acuity reduced [Recovered/Resolved]
  - Eye inflammation [Recovered/Resolved]
  - Scleritis [Recovered/Resolved]
  - Cataract subcapsular [Unknown]

NARRATIVE: CASE EVENT DATE: 20230425
